FAERS Safety Report 6431662-5 (Version None)
Quarter: 2009Q4

REPORT INFORMATION
  Report Type: 
  Country: None (occurrence: None)
  Receive Date: 20091103
  Receipt Date: 20091020
  Transmission Date: 20100525
  Serious: Yes (Other)
  Sender: FDA-Public Use
  Company Number: 2009275387

PATIENT
  Age: 23 Year
  Sex: Female
  Weight: 51 kg

DRUGS (5)
  1. FRAGMIN [Suspect]
     Indication: MESENTERIC VEIN THROMBOSIS
     Dosage: 1000 IU, 1X/DAY, SUBCUTANEOUS
     Route: 058
     Dates: start: 20090730, end: 20090806
  2. ZOFENOPRIL CALCIUM (ZOFENOPRIL CALCIUM) [Concomitant]
  3. COLECALCIFEROL (COLECALCIFEROL) [Concomitant]
  4. ACETAMINOPHEN [Concomitant]
  5. PHOSPHATE-SANDOZ (POTASSIUM BICARBONATE, SODIUM BICARBONATE, SODIUM PH [Concomitant]

REACTIONS (2)
  - ALANINE AMINOTRANSFERASE INCREASED [None]
  - ASPARTATE AMINOTRANSFERASE INCREASED [None]
